FAERS Safety Report 21993609 (Version 1)
Quarter: 2023Q1

REPORT INFORMATION
  Report Type: Spontaneous
  Country: US (occurrence: None)
  Receive Date: 20230215
  Receipt Date: 20230215
  Transmission Date: 20230418
  Serious: Yes (Hospitalization, Other)
  Sender: FDA-Public Use
  Company Number: US-Hikma Pharmaceuticals USA Inc.-US-H14001-23-00418

PATIENT
  Age: 57 Year
  Sex: Male
  Weight: 79.4 kg

DRUGS (7)
  1. METHAMPHETAMINE [Suspect]
     Active Substance: METHAMPHETAMINE
     Indication: Product used for unknown indication
     Dosage: UNKNOWN
     Route: 065
  2. TYVASO [Suspect]
     Active Substance: TREPROSTINIL
     Indication: Pulmonary arterial hypertension
     Dates: start: 202301
  3. TYVASO [Suspect]
     Active Substance: TREPROSTINIL
     Dosage: UNKNOWN
     Dates: start: 20230111, end: 20230124
  4. TYVASO [Suspect]
     Active Substance: TREPROSTINIL
     Dates: start: 20230124
  5. TYVASO [Suspect]
     Active Substance: TREPROSTINIL
     Indication: Pulmonary arterial hypertension
     Dosage: UNKNOWN
  6. TADALAFIL [Concomitant]
     Active Substance: TADALAFIL
     Indication: Product used for unknown indication
     Dosage: UNKNOWN
     Route: 065
  7. WARFARIN SODIUM [Concomitant]
     Active Substance: WARFARIN SODIUM
     Indication: Product used for unknown indication
     Dosage: UNKNOWN
     Route: 065

REACTIONS (11)
  - Norovirus infection [Unknown]
  - Lung infiltration [Unknown]
  - HIV infection [Unknown]
  - Dyspnoea [Unknown]
  - Chest discomfort [Unknown]
  - Paraesthesia oral [Unknown]
  - Hypotension [Unknown]
  - Tinnitus [Unknown]
  - Diarrhoea [Unknown]
  - Dizziness [Unknown]
  - Drug abuse [Unknown]

NARRATIVE: CASE EVENT DATE: 20230101
